FAERS Safety Report 6446781-7 (Version None)
Quarter: 2009Q4

REPORT INFORMATION
  Report Type: 
  Country: None (occurrence: None)
  Receive Date: 20091119
  Receipt Date: 20091109
  Transmission Date: 20100525
  Serious: Yes (Other)
  Sender: FDA-Public Use
  Company Number: PHHY2009SE49702

PATIENT
  Sex: Female

DRUGS (1)
  1. VOLTAREN T [Suspect]
     Indication: PAIN
     Dosage: 50 MG
     Route: 048

REACTIONS (2)
  - DYSPNOEA [None]
  - POST PROCEDURAL COMPLICATION [None]
